FAERS Safety Report 25817186 (Version 1)
Quarter: 2025Q3

REPORT INFORMATION
  Report Type: Spontaneous
  Country: US (occurrence: US)
  Receive Date: 20250918
  Receipt Date: 20250918
  Transmission Date: 20251021
  Serious: Yes (Life-Threatening, Hospitalization)
  Sender: MYLAN
  Company Number: US-MYLANLABS-2025M1079220

PATIENT
  Age: 70 Year
  Sex: Female

DRUGS (12)
  1. LEVETIRACETAM [Suspect]
     Active Substance: LEVETIRACETAM
     Indication: Generalised tonic-clonic seizure
  2. LEVETIRACETAM [Suspect]
     Active Substance: LEVETIRACETAM
     Route: 042
  3. LEVETIRACETAM [Suspect]
     Active Substance: LEVETIRACETAM
     Route: 042
  4. LEVETIRACETAM [Suspect]
     Active Substance: LEVETIRACETAM
  5. LORAZEPAM [Suspect]
     Active Substance: LORAZEPAM
     Indication: Generalised tonic-clonic seizure
  6. LORAZEPAM [Suspect]
     Active Substance: LORAZEPAM
     Route: 042
  7. LORAZEPAM [Suspect]
     Active Substance: LORAZEPAM
     Route: 042
  8. LORAZEPAM [Suspect]
     Active Substance: LORAZEPAM
  9. PHENYTOIN [Suspect]
     Active Substance: PHENYTOIN
     Indication: Generalised tonic-clonic seizure
  10. PHENYTOIN [Suspect]
     Active Substance: PHENYTOIN
     Route: 042
  11. PHENYTOIN [Suspect]
     Active Substance: PHENYTOIN
     Route: 042
  12. PHENYTOIN [Suspect]
     Active Substance: PHENYTOIN

REACTIONS (1)
  - Drug ineffective [Unknown]
